FAERS Safety Report 16021152 (Version 4)
Quarter: 2019Q2

REPORT INFORMATION
  Report Type: Spontaneous
  Country: IT (occurrence: CA)
  Receive Date: 20190301
  Receipt Date: 20190424
  Transmission Date: 20190711
  Serious: Yes (Hospitalization, Other)
  Sender: FDA-Public Use
  Company Number: IT-ACCORD-109605

PATIENT
  Age: 27 Year
  Sex: Female

DRUGS (15)
  1. DOMPERIDONE [Suspect]
     Active Substance: DOMPERIDONE
     Indication: PRODUCT USED FOR UNKNOWN INDICATION
     Dosage: UNK
     Route: 065
  2. HALOPERIDOL. [Suspect]
     Active Substance: HALOPERIDOL
     Indication: NAUSEA
     Dosage: 1 MG, Q4HR
     Route: 048
  3. INSULIN [Concomitant]
     Active Substance: INSULIN NOS
     Route: 065
  4. CITALOPRAM [Suspect]
     Active Substance: CITALOPRAM HYDROBROMIDE
     Indication: DEPRESSION
     Dosage: 20 MG, UNK
     Route: 065
  5. HYOSCINE [Suspect]
     Active Substance: SCOPOLAMINE
     Indication: PRODUCT USED FOR UNKNOWN INDICATION
     Route: 065
  6. PREGABALIN. [Suspect]
     Active Substance: PREGABALIN
     Indication: PRODUCT USED FOR UNKNOWN INDICATION
     Route: 065
  7. ERYTHROPOIETIN [Concomitant]
     Active Substance: ERYTHROPOIETIN
  8. AMITRIPTYLINE [Suspect]
     Active Substance: AMITRIPTYLINE
     Indication: PRODUCT USED FOR UNKNOWN INDICATION
     Dosage: UNK
     Route: 065
  9. ONDANSETRON [Suspect]
     Active Substance: ONDANSETRON
     Indication: PRODUCT USED FOR UNKNOWN INDICATION
     Route: 065
  10. ZOPICLONE [Concomitant]
     Active Substance: ZOPICLONE
  11. LORAZEPAM. [Suspect]
     Active Substance: LORAZEPAM
     Indication: DEPRESSION
     Dosage: UNK UNK,PRN
     Route: 065
  12. PROCHLORPERAZINE. [Suspect]
     Active Substance: PROCHLORPERAZINE
     Indication: PRODUCT USED FOR UNKNOWN INDICATION
     Dosage: UNK
     Route: 065
  13. RABEPRAZOLE/RABEPRAZOLE SODIUM [Concomitant]
     Dosage: UNK
     Route: 065
  14. AMLODIPINE [Concomitant]
     Active Substance: AMLODIPINE BESYLATE
     Dosage: UNK
     Route: 065
  15. FUROSEMIDE. [Concomitant]
     Active Substance: FUROSEMIDE
     Route: 065

REACTIONS (6)
  - Akathisia [Recovered/Resolved]
  - Suicidal ideation [Recovered/Resolved]
  - Gastrointestinal disorder [Recovered/Resolved]
  - Nausea [Recovering/Resolving]
  - Vomiting [Recovering/Resolving]
  - Abdominal pain [Recovering/Resolving]
